FAERS Safety Report 9461348 (Version 2)
Quarter: 2016Q3

REPORT INFORMATION
  Report Type: Report from Study
  Country: IL (occurrence: IL)
  Receive Date: 20130816
  Receipt Date: 20160913
  Transmission Date: 20161109
  Serious: Yes (Death, Other)
  Sender: FDA-Public Use
  Company Number: IL-CELGENEUS-082-21880-13080601

PATIENT

DRUGS (3)
  1. REVLIMID [Suspect]
     Active Substance: LENALIDOMIDE
     Route: 048
  2. REVLIMID [Suspect]
     Active Substance: LENALIDOMIDE
     Indication: MYELODYSPLASTIC SYNDROME
     Route: 048
  3. AZACITIDINE. [Suspect]
     Active Substance: AZACITIDINE
     Indication: MYELODYSPLASTIC SYNDROME
     Route: 058

REACTIONS (19)
  - Thrombocytopenia [Unknown]
  - Neutropenia [Unknown]
  - Myelodysplastic syndrome [Unknown]
  - Vomiting [Unknown]
  - Adverse event [Unknown]
  - Sinusitis [Unknown]
  - Rash [Unknown]
  - Infection [Unknown]
  - General physical health deterioration [Unknown]
  - Pruritus [Unknown]
  - Death [Fatal]
  - Pneumonia [Unknown]
  - Nausea [Unknown]
  - Diarrhoea [Unknown]
  - Sepsis [Unknown]
  - Cytopenia [Unknown]
  - Acute myeloid leukaemia [Unknown]
  - Pyrexia [Unknown]
  - Toxicity to various agents [Unknown]
